FAERS Safety Report 11089911 (Version 1)
Quarter: 2015Q2

REPORT INFORMATION
  Report Type: Spontaneous
  Country: IN (occurrence: None)
  Receive Date: 20150501
  Receipt Date: 20150501
  Transmission Date: 20150821
  Serious: Yes (Death)
  Sender: FDA-Public Use
  Company Number: PR7983

PATIENT
  Age: 70 Year
  Sex: Female
  Weight: 80 kg

DRUGS (6)
  1. RIFAMPIN. [Suspect]
     Active Substance: RIFAMPIN
  2. ISONIAZID. [Suspect]
     Active Substance: ISONIAZID
  3. PYRAZINAMIDE. [Suspect]
     Active Substance: PYRAZINAMIDE
  4. ETHAMBUTOL [Suspect]
     Active Substance: ETHAMBUTOL HYDROCHLORIDE
  5. PANTOPRAZOLE [Suspect]
     Active Substance: PANTOPRAZOLE SODIUM
  6. CALCIUM [Suspect]
     Active Substance: CALCIUM

REACTIONS (4)
  - Hepatic encephalopathy [None]
  - Drug-induced liver injury [None]
  - Shock [None]
  - Coma [None]
